FAERS Safety Report 16614036 (Version 1)
Quarter: 2019Q3

REPORT INFORMATION
  Report Type: Spontaneous
  Country: FR (occurrence: FR)
  Receive Date: 20190723
  Receipt Date: 20190723
  Transmission Date: 20191004
  Serious: Yes (Hospitalization)
  Sender: FDA-Public Use
  Company Number: FR-PFIZER INC-2019304341

PATIENT
  Age: 48 Year
  Sex: Male

DRUGS (6)
  1. SERESTA [Suspect]
     Active Substance: OXAZEPAM
     Indication: INTENTIONAL PRODUCT MISUSE
     Dosage: 150 MG, 1X/DAY UP TO 15 DF / DAY
     Route: 065
  2. SUBUTEX [Suspect]
     Active Substance: BUPRENORPHINE HYDROCHLORIDE
     Indication: INTENTIONAL PRODUCT MISUSE
     Dosage: 12 MG, SNIFFING, INJECTION, MULTI DAILY INTAKES
  3. CANNABIS [Suspect]
     Active Substance: CANNABIS SATIVA SUBSP. INDICA TOP
     Indication: DRUG ABUSE
     Dosage: 3 JOINTS/ DAILY
     Route: 065
  4. XANAX [Suspect]
     Active Substance: ALPRAZOLAM
     Indication: INTENTIONAL PRODUCT MISUSE
     Dosage: 2 MG, 1X/DAY
     Route: 065
  5. VALIUM [Suspect]
     Active Substance: DIAZEPAM
     Indication: INTENTIONAL PRODUCT MISUSE
     Dosage: 40 MG, 1X/DAY UP TO 10 DF/ DAY
     Route: 065
  6. VENTOLINE [SALBUTAMOL] [Suspect]
     Active Substance: ALBUTEROL SULFATE
     Dosage: 3-4 PUFFS/ DAILY

REACTIONS (3)
  - Drug dependence [Not Recovered/Not Resolved]
  - Drug abuse [Not Recovered/Not Resolved]
  - Intentional product misuse [Not Recovered/Not Resolved]
